FAERS Safety Report 6640750-X (Version None)
Quarter: 2010Q1

REPORT INFORMATION
  Report Type: 
  Country: None (occurrence: None)
  Receive Date: 20100318
  Receipt Date: 20100309
  Transmission Date: 20100710
  Serious: Yes (Other)
  Sender: FDA-Public Use
  Company Number: CA-JNJFOC-20100303584

PATIENT
  Sex: Male
  Weight: 92.2 kg

DRUGS (10)
  1. REMICADE [Suspect]
     Indication: CROHN'S DISEASE
     Route: 042
  2. URSODIOL [Concomitant]
  3. PREDNISONE [Concomitant]
  4. CALCIUM AND VITAMIN D [Concomitant]
  5. TRAZODONE HCL [Concomitant]
  6. HYDROXYZINE [Concomitant]
  7. PANTOPRAZOLE [Concomitant]
  8. COLCHICINE [Concomitant]
  9. CIPRALEX [Concomitant]
  10. ACTONEL [Concomitant]

REACTIONS (1)
  - CHEST PAIN [None]
